FAERS Safety Report 9059384 (Version 1)
Quarter: 2013Q1

REPORT INFORMATION
  Report Type: Spontaneous
  Country: AR (occurrence: AR)
  Receive Date: 20130211
  Receipt Date: 20130211
  Transmission Date: 20140127
  Serious: Yes (Other)
  Sender: FDA-Public Use
  Company Number: AR-GLAXOSMITHKLINE-A1008745A

PATIENT
  Sex: Female

DRUGS (2)
  1. REQUIP [Suspect]
     Indication: PARKINSON^S DISEASE
     Dosage: 8MGD PER DAY
     Route: 048
     Dates: start: 2011
  2. NONE [Concomitant]

REACTIONS (2)
  - Basal cell carcinoma [Unknown]
  - Skin discolouration [Unknown]
